FAERS Safety Report 5215184-5 (Version None)
Quarter: 2007Q1

REPORT INFORMATION
  Report Type: 
  Country: None (occurrence: None)
  Receive Date: 20061108
  Receipt Date: 20060505
  Transmission Date: 20070707
  Serious: Yes (Hospitalization)
  Sender: FDA-Public Use
  Company Number: US200605001561

PATIENT
  Age: 7 Year
  Sex: Female

DRUGS (3)
  1. ZYPREXA [Suspect]
     Indication: BIPOLAR DISORDER
  2. PROZAC [Suspect]
     Indication: BIPOLAR DISORDER
  3. DEPAKOTE [Concomitant]

REACTIONS (6)
  - AGGRESSION [None]
  - ANGER [None]
  - HALLUCINATION [None]
  - MANIA [None]
  - MENTAL IMPAIRMENT [None]
  - PARANOIA [None]
